FAERS Safety Report 8161305-4 (Version None)
Quarter: 2012Q1

REPORT INFORMATION
  Report Type: 
  Country: None (occurrence: None)
  Receive Date: 20120224
  Receipt Date: 20120214
  Transmission Date: 20120608
  Serious: Yes (Other)
  Sender: FDA-Public Use
  Company Number: US-RB-034656-12

PATIENT
  Age: 65 Year
  Sex: Female

DRUGS (2)
  1. PAXIL [Concomitant]
     Indication: PRODUCT USED FOR UNKNOWN INDICATION
     Dosage: TAKING FOR THE PAST 15 YEARS
  2. MUCINEX [Suspect]
     Indication: PRODUCT USED FOR UNKNOWN INDICATION
     Route: 048
     Dates: start: 20120102, end: 20120106

REACTIONS (6)
  - APHASIA [None]
  - DIZZINESS [None]
  - DREAMY STATE [None]
  - AMNESIA [None]
  - HEADACHE [None]
  - REPETITIVE SPEECH [None]
